FAERS Safety Report 5602016-6 (Version None)
Quarter: 2008Q1

REPORT INFORMATION
  Report Type: 
  Country: None (occurrence: None)
  Receive Date: 20080122
  Receipt Date: 20080122
  Transmission Date: 20080703
  Serious: Yes (Other)
  Sender: FDA-Public Use
  Company Number: None

PATIENT
  Age: 61 Year
  Sex: Female
  Weight: 65.7716 kg

DRUGS (1)
  1. CHANTIX [Suspect]
     Indication: TOBACCO ABUSE
     Dosage: 1MG BID PO
     Route: 048
     Dates: start: 20071010, end: 20071101

REACTIONS (1)
  - SUICIDAL IDEATION [None]
